FAERS Safety Report 24333022 (Version 1)
Quarter: 2024Q3

REPORT INFORMATION
  Report Type: Spontaneous
  Country: JP (occurrence: JP)
  Receive Date: 20240918
  Receipt Date: 20240918
  Transmission Date: 20241016
  Serious: Yes (Hospitalization)
  Sender: MYLAN
  Company Number: JP-MYE-2024M1083457AA

PATIENT
  Age: 6 Decade
  Sex: Female

DRUGS (8)
  1. TACROLIMUS [Suspect]
     Active Substance: TACROLIMUS
     Indication: Prophylaxis against graft versus host disease
     Route: 065
  2. PREDNISOLONE [Suspect]
     Active Substance: PREDNISOLONE
     Indication: Acute graft versus host disease
     Route: 065
  3. FLUDARABINE [Suspect]
     Active Substance: FLUDARABINE PHOSPHATE
     Indication: Bone marrow conditioning regimen
     Route: 065
  4. MELPHALAN [Suspect]
     Active Substance: MELPHALAN
     Indication: Bone marrow conditioning regimen
     Route: 065
  5. MELPHALAN [Suspect]
     Active Substance: MELPHALAN
     Indication: Chronic graft versus host disease
  6. METHOTREXATE [Suspect]
     Active Substance: METHOTREXATE
     Indication: Prophylaxis against graft versus host disease
     Dosage: DURATION: SHORT TERM
     Route: 065
  7. HUMAN IMMUNOGLOBULIN G [Suspect]
     Active Substance: HUMAN IMMUNOGLOBULIN G
     Indication: Acute graft versus host disease
     Route: 065
  8. METRONIDAZOLE [Concomitant]
     Active Substance: METRONIDAZOLE
     Indication: Clostridium difficile infection
     Route: 065

REACTIONS (2)
  - Progressive multifocal leukoencephalopathy [Unknown]
  - Drug ineffective [Unknown]
